FAERS Safety Report 24250661 (Version 1)
Quarter: 2024Q3

REPORT INFORMATION
  Report Type: Spontaneous
  Country: CN (occurrence: CN)
  Receive Date: 20240826
  Receipt Date: 20240826
  Transmission Date: 20241017
  Serious: Yes (Life-Threatening, Other)
  Sender: BAXTER
  Company Number: None

PATIENT
  Age: 12 Year
  Sex: Female
  Weight: 30 kg

DRUGS (12)
  1. MESNA [Suspect]
     Active Substance: MESNA
     Indication: Adverse drug reaction
     Dosage: UNK
     Route: 065
     Dates: start: 20240531
  2. MESNA [Suspect]
     Active Substance: MESNA
     Indication: Chemotherapy
  3. MESNA [Suspect]
     Active Substance: MESNA
     Indication: Electrolyte substitution therapy
  4. CYCLOPHOSPHAMIDE [Suspect]
     Active Substance: CYCLOPHOSPHAMIDE
     Indication: Chemotherapy
     Dosage: 1.5 G, ONE TIME IN ONE DAY
     Route: 041
     Dates: start: 20240531, end: 20240531
  5. IFOSFAMIDE [Suspect]
     Active Substance: IFOSFAMIDE
     Indication: Chemotherapy
     Dosage: 1.5 G, (PICC CATHETERIZATION) (STOP TIME: 13:25)
     Route: 041
     Dates: start: 20240531
  6. OMEPRAZOLE [Suspect]
     Active Substance: OMEPRAZOLE
     Indication: Premedication
     Dosage: UNK
     Route: 042
     Dates: start: 20240531
  7. GRANISETRON [Suspect]
     Active Substance: GRANISETRON
     Indication: Premedication
     Dosage: UNK
     Route: 042
     Dates: start: 20240531
  8. METHYLPREDNISOLONE [Suspect]
     Active Substance: METHYLPREDNISOLONE
     Indication: Premedication
     Dosage: UNK
     Route: 042
     Dates: start: 20240531
  9. VITAMIN B6 [Suspect]
     Active Substance: PYRIDOXINE HYDROCHLORIDE
     Indication: Premedication
     Dosage: UNK
     Route: 042
     Dates: start: 20240531
  10. GLUTATHIONE [Suspect]
     Active Substance: GLUTATHIONE
     Indication: Chemotherapy
     Dosage: UNK
     Route: 065
     Dates: start: 20240531
  11. GLUTATHIONE [Suspect]
     Active Substance: GLUTATHIONE
     Indication: Adverse drug reaction
  12. GLUTATHIONE [Suspect]
     Active Substance: GLUTATHIONE
     Indication: Electrolyte substitution therapy

REACTIONS (7)
  - Neurofibrosarcoma [Unknown]
  - Condition aggravated [Unknown]
  - Cardiac arrest [Not Recovered/Not Resolved]
  - Dyspnoea [Unknown]
  - Generalised tonic-clonic seizure [Not Recovered/Not Resolved]
  - Seizure [Unknown]
  - Musculoskeletal stiffness [Unknown]

NARRATIVE: CASE EVENT DATE: 20240531
